FAERS Safety Report 6117427-2 (Version None)
Quarter: 2009Q1

REPORT INFORMATION
  Report Type: 
  Country: None (occurrence: None)
  Receive Date: 20090314
  Receipt Date: 20090116
  Transmission Date: 20090719
  Serious: No
  Sender: FDA-Public Use
  Company Number: US-ABBOTT-09P-163-0498358-00

PATIENT
  Sex: Female

DRUGS (2)
  1. HUMIRA [Suspect]
     Indication: RHEUMATOID ARTHRITIS
     Dates: start: 20090113
  2. LYRICA [Concomitant]
     Indication: FIBROMYALGIA

REACTIONS (3)
  - FATIGUE [None]
  - MUSCULOSKELETAL CHEST PAIN [None]
  - SENSATION OF HEAVINESS [None]
